FAERS Safety Report 8823620 (Version 1)
Quarter: 2012Q4

REPORT INFORMATION
  Report Type: 
  Country: GB (occurrence: GB)
  Receive Date: 20121003
  Receipt Date: 20121003
  Transmission Date: 20130627
  Serious: Yes (Hospitalization)
  Sender: FDA-Public Use
  Company Number: PHHY2012GB084710

PATIENT
  Age: 80 Year
  Sex: Female
  Weight: 70 kg

DRUGS (5)
  1. CETIRIZINE [Suspect]
     Indication: SEASONAL ALLERGY
     Dosage: 10 mg
     Route: 048
     Dates: start: 20120912, end: 20120916
  2. OMEPRAZOLE [Concomitant]
  3. RANITIDINE [Concomitant]
  4. ASPIRIN [Concomitant]
  5. ADCAL-D3 [Concomitant]

REACTIONS (2)
  - Hyponatraemia [Not Recovered/Not Resolved]
  - Fall [Unknown]
